FAERS Safety Report 18280847 (Version 1)
Quarter: 2020Q3

REPORT INFORMATION
  Report Type: Spontaneous
  Country: US (occurrence: US)
  Receive Date: 20200918
  Receipt Date: 20200918
  Transmission Date: 20201103
  Serious: No
  Sender: FDA-Public Use
  Company Number: US-ALLERGAN-2027565US

PATIENT

DRUGS (1)
  1. SAPHRIS [Suspect]
     Active Substance: ASENAPINE MALEATE
     Indication: PRODUCT USED FOR UNKNOWN INDICATION
     Route: 060

REACTIONS (5)
  - Balance disorder [Unknown]
  - Loss of libido [Unknown]
  - Oral discomfort [Not Recovered/Not Resolved]
  - Product taste abnormal [Unknown]
  - Impaired work ability [Not Recovered/Not Resolved]
